FAERS Safety Report 12535387 (Version 3)
Quarter: 2016Q3

REPORT INFORMATION
  Report Type: Spontaneous
  Country: GB (occurrence: GB)
  Receive Date: 20160707
  Receipt Date: 20160810
  Transmission Date: 20161109
  Serious: Yes (Other)
  Sender: FDA-Public Use
  Company Number: GB-AUROBINDO-AUR-APL-2016-08389

PATIENT

DRUGS (7)
  1. PAROXETINE TABLET [Suspect]
     Active Substance: PAROXETINE
     Indication: PRODUCT USED FOR UNKNOWN INDICATION
     Dosage: UNK
     Route: 065
  2. IMIPRAMINE [Concomitant]
     Active Substance: IMIPRAMINE
     Indication: PRODUCT USED FOR UNKNOWN INDICATION
     Dosage: UNK
     Route: 065
     Dates: start: 19950922
  3. SEROXAT [Suspect]
     Active Substance: PAROXETINE HYDROCHLORIDE
     Indication: DEPRESSION
     Dosage: UNK
     Route: 065
     Dates: start: 19950512
  4. PARACETAMOL SOLUABLE TABLET [Suspect]
     Active Substance: ACETAMINOPHEN
     Indication: PRODUCT USED FOR UNKNOWN INDICATION
     Dosage: UNK
     Route: 065
  5. ALCOHOL. [Suspect]
     Active Substance: ALCOHOL
     Indication: PRODUCT USED FOR UNKNOWN INDICATION
     Dosage: UNK
     Route: 065
  6. PROZAC [Concomitant]
     Active Substance: FLUOXETINE HYDROCHLORIDE
     Indication: PRODUCT USED FOR UNKNOWN INDICATION
     Dosage: UNK
     Route: 065
     Dates: start: 19960131, end: 1999
  7. HYPERICUM PERFORATUM [Concomitant]
     Active Substance: HYPERICUM PERFORATUM
     Indication: PRODUCT USED FOR UNKNOWN INDICATION
     Dosage: UNK
     Route: 065
     Dates: start: 1999, end: 2005

REACTIONS (15)
  - Nightmare [Unknown]
  - Mood swings [Unknown]
  - Suicide attempt [Unknown]
  - Fatigue [Unknown]
  - Tearfulness [Unknown]
  - Anxiety [Recovered/Resolved]
  - Hunger [Unknown]
  - Derealisation [Unknown]
  - Drug withdrawal syndrome [Unknown]
  - Aggression [Unknown]
  - Crying [Unknown]
  - Binge eating [Unknown]
  - Depression [Unknown]
  - Social avoidant behaviour [Unknown]
  - Overdose [Unknown]

NARRATIVE: CASE EVENT DATE: 19950523
